FAERS Safety Report 15243116 (Version 3)
Quarter: 2021Q1

REPORT INFORMATION
  Report Type: Spontaneous
  Country: ES (occurrence: ES)
  Receive Date: 20180806
  Receipt Date: 20210109
  Transmission Date: 20210419
  Serious: Yes (Hospitalization, Disabling, Other)
  Sender: FDA-Public Use
  Company Number: ES-AXELLIA-001831

PATIENT
  Age: 86 Year
  Sex: Male

DRUGS (8)
  1. ACENOCOUMAROL [Concomitant]
     Active Substance: ACENOCOUMAROL
  2. OMEPRAZOLE. [Concomitant]
     Active Substance: OMEPRAZOLE
  3. LORMETAZEPAM [Concomitant]
     Active Substance: LORMETAZEPAM
  4. DAPTOMYCIN. [Suspect]
     Active Substance: DAPTOMYCIN
     Indication: INTERVERTEBRAL DISCITIS
     Dosage: EMPIRICAL TREATMENT?350 MG, Q24H
  5. PREDNISONE. [Concomitant]
     Active Substance: PREDNISONE
     Indication: POLYMYALGIA RHEUMATICA
  6. FUROSEMIDE. [Concomitant]
     Active Substance: FUROSEMIDE
  7. CEFEPIME [Concomitant]
     Active Substance: CEFEPIME HYDROCHLORIDE
     Indication: INTERVERTEBRAL DISCITIS
     Dosage: 2 G, Q8H
  8. BISOPROLOL [Concomitant]
     Active Substance: BISOPROLOL

REACTIONS (4)
  - Acute kidney injury [Recovered/Resolved]
  - Haemoptysis [Recovered/Resolved]
  - Rhabdomyolysis [Recovered/Resolved]
  - Uraemic encephalopathy [Recovered/Resolved]
